FAERS Safety Report 8043144-8 (Version None)
Quarter: 2012Q1

REPORT INFORMATION
  Report Type: 
  Country: None (occurrence: None)
  Receive Date: 20120112
  Receipt Date: 20120103
  Transmission Date: 20120608
  Serious: Yes (Death, Hospitalization, Other)
  Sender: FDA-Public Use
  Company Number: US-BAXTER-2011BH040301

PATIENT
  Sex: Male

DRUGS (1)
  1. DIANEAL [Suspect]
     Indication: PERITONEAL DIALYSIS
     Route: 033
     Dates: end: 20111201

REACTIONS (11)
  - NUTRITIONAL CONDITION ABNORMAL [None]
  - PAIN [None]
  - GANGRENE [None]
  - PERITONITIS BACTERIAL [None]
  - FAILURE TO THRIVE [None]
  - PERIPHERAL VASCULAR DISORDER [None]
  - NAUSEA [None]
  - SEPSIS [None]
  - NECROSIS [None]
  - VOMITING [None]
  - PERITONEAL DIALYSIS COMPLICATION [None]
